FAERS Safety Report 8318726 (Version 2)
Quarter: 2013Q1

REPORT INFORMATION
  Report Type: Spontaneous
  Country: US (occurrence: US)
  Receive Date: 20120103
  Receipt Date: 20130225
  Transmission Date: 20140127
  Serious: Yes (Life-Threatening, Congenital Anomaly)
  Sender: FDA-Public Use
  Company Number: US-PFIZER INC-2011288481

PATIENT
  Sex: Female

DRUGS (10)
  1. ZOLOFT [Suspect]
     Dosage: UNK
     Route: 064
     Dates: start: 200701
  2. PRENATAL VITAMINS [Concomitant]
     Dosage: UNK
     Route: 064
  3. IBUPROFEN [Concomitant]
     Dosage: UNK
     Route: 064
  4. DICLOXACILLIN [Concomitant]
     Dosage: UNK
     Route: 064
  5. ZITHROMAX [Concomitant]
     Dosage: UNK
     Route: 064
  6. RHOGAM [Concomitant]
     Dosage: UNK
     Route: 064
  7. VISTARIL [Concomitant]
     Dosage: UNK
     Route: 064
  8. ALLEGRA-D [Concomitant]
     Dosage: UNK
     Route: 064
  9. TYLENOL/CODEINE #3 [Concomitant]
     Dosage: UNK
     Route: 064
  10. SERTRALINE [Concomitant]
     Dosage: UNK
     Route: 064

REACTIONS (5)
  - Maternal exposure timing unspecified [Unknown]
  - Congenital anomaly [Unknown]
  - Haemangioma congenital [Unknown]
  - Tooth development disorder [Unknown]
  - Unevaluable event [Unknown]
